FAERS Safety Report 14577971 (Version 1)
Quarter: 2018Q1

REPORT INFORMATION
  Report Type: Spontaneous
  Country: CA (occurrence: CA)
  Receive Date: 20180227
  Receipt Date: 20180227
  Transmission Date: 20180509
  Serious: Yes (Hospitalization)
  Sender: FDA-Public Use
  Company Number: CA-PFIZER INC-2018078062

PATIENT
  Age: 51 Year
  Sex: Female

DRUGS (1)
  1. CHAMPIX [Suspect]
     Active Substance: VARENICLINE TARTRATE
     Indication: SMOKING CESSATION THERAPY

REACTIONS (10)
  - Self-injurious ideation [Unknown]
  - Disease recurrence [Unknown]
  - Suicidal ideation [Unknown]
  - Sleep disorder [Unknown]
  - Nightmare [Unknown]
  - Depressive symptom [Unknown]
  - Feeling of despair [Unknown]
  - Condition aggravated [Unknown]
  - Decreased appetite [Unknown]
  - Weight increased [Unknown]
